FAERS Safety Report 7343770-5 (Version None)
Quarter: 2011Q1

REPORT INFORMATION
  Report Type: 
  Country: None (occurrence: None)
  Receive Date: 20110308
  Receipt Date: 20110308
  Transmission Date: 20110831
  Serious: Yes (Hospitalization)
  Sender: FDA-Public Use
  Company Number: None

PATIENT
  Age: 37 Year
  Sex: Female
  Weight: 117.9352 kg

DRUGS (1)
  1. SULFAMETHOXAZOLE AND TRIMETHOPRIM [Suspect]
     Dosage: 1 TABLET TWICE A DAY PO
     Route: 048
     Dates: start: 20110218, end: 20110227

REACTIONS (14)
  - CHILLS [None]
  - SPLENOMEGALY [None]
  - HEADACHE [None]
  - BLOOD BILIRUBIN INCREASED [None]
  - PYREXIA [None]
  - HYPERHIDROSIS [None]
  - LIVER DISORDER [None]
  - SERUM SICKNESS [None]
  - DEHYDRATION [None]
  - DECREASED APPETITE [None]
  - FATIGUE [None]
  - PAIN [None]
  - MUSCLE STRAIN [None]
  - INFLAMMATION [None]
